FAERS Safety Report 9037024 (Version 1)
Quarter: 2013Q1

REPORT INFORMATION
  Report Type: Spontaneous
  Country: US (occurrence: None)
  Receive Date: 20130118
  Receipt Date: 20130118
  Transmission Date: 20140127
  Serious: Yes (Hospitalization)
  Sender: FDA-Public Use
  Company Number: None

PATIENT
  Age: 35 Year
  Sex: Female
  Weight: 90.1 kg

DRUGS (8)
  1. VALPROIC ACID [Suspect]
     Indication: POST-TRAUMATIC STRESS DISORDER
     Route: 048
  2. CLONAZEPAM [Concomitant]
  3. BACLOFEN [Concomitant]
  4. ONDANSETRON [Concomitant]
  5. VENLAFAXINE [Concomitant]
  6. QUETIAPINE [Concomitant]
  7. ACETAMINOPHEN-HYDROCODONE [Concomitant]
  8. DIVALPROEX SODIUM [Concomitant]

REACTIONS (9)
  - Serotonin syndrome [None]
  - Encephalopathy [None]
  - Toxicity to various agents [None]
  - Cognitive disorder [None]
  - Hypoxia [None]
  - Incoherent [None]
  - Agitation [None]
  - Delirium [None]
  - Hyperreflexia [None]
